FAERS Safety Report 7670508-4 (Version None)
Quarter: 2011Q3

REPORT INFORMATION
  Report Type: 
  Country: None (occurrence: None)
  Receive Date: 20110809
  Receipt Date: 20110801
  Transmission Date: 20111222
  Serious: No
  Sender: FDA-Public Use
  Company Number: US-BIOGENIDEC-2011BI028725

PATIENT
  Sex: Female

DRUGS (3)
  1. TYSABRI [Suspect]
     Indication: MULTIPLE SCLEROSIS
     Route: 042
     Dates: start: 20101216
  2. TYSABRI [Suspect]
     Route: 042
     Dates: start: 20061107, end: 20080728
  3. TYSABRI [Suspect]
     Route: 042
     Dates: start: 20090324, end: 20100125

REACTIONS (1)
  - ASTHENIA [None]
